FAERS Safety Report 25114844 (Version 4)
Quarter: 2025Q2

REPORT INFORMATION
  Report Type: Spontaneous
  Country: AT (occurrence: AT)
  Receive Date: 20250324
  Receipt Date: 20250605
  Transmission Date: 20250716
  Serious: Yes (Death, Other)
  Sender: IPSEN BIOPHARMACEUTICALS, INC.
  Company Number: AT-SERVIER-S25000002

PATIENT
  Age: 57 Year
  Sex: Female

DRUGS (7)
  1. ONIVYDE [Suspect]
     Active Substance: IRINOTECAN HYDROCHLORIDE
     Indication: Pancreatic carcinoma metastatic
     Dosage: 50 MG/M2, EVERY 2 WEEKS, 4 ADMINISTRATIONS
     Route: 042
     Dates: start: 202308
  2. ONIVYDE [Suspect]
     Active Substance: IRINOTECAN HYDROCHLORIDE
     Dosage: 42.5 MG/M2, EVERY 2 WEEKS
     Route: 042
     Dates: end: 202407
  3. OXALIPLATIN [Suspect]
     Active Substance: OXALIPLATIN
     Indication: Pancreatic carcinoma metastatic
     Dosage: 60 MG/M2, EVERY 2 WEEKS, 6 ADMINISTRATIONS
     Route: 042
     Dates: start: 202308
  4. OXALIPLATIN [Suspect]
     Active Substance: OXALIPLATIN
     Dosage: 51 MG/M2, EVERY 2 WEEKS
     Route: 042
     Dates: end: 202407
  5. FLUOROURACIL [Suspect]
     Active Substance: FLUOROURACIL
     Indication: Pancreatic carcinoma metastatic
     Dosage: 2400 MG/M2, EVERY 2 WEEKS, 6 ADMINISTRATIONS
     Route: 042
     Dates: start: 202308
  6. FLUOROURACIL [Suspect]
     Active Substance: FLUOROURACIL
     Dosage: 2040 MG/M2, EVERY 2 WEEKS
     Route: 042
     Dates: end: 202407
  7. LEUCOVORIN [Concomitant]
     Active Substance: LEUCOVORIN\LEUCOVORIN CALCIUM
     Indication: Pancreatic carcinoma metastatic
     Dosage: 400 MG/M2, EVERY 2 WEEKS
     Route: 042
     Dates: start: 202308, end: 202407

REACTIONS (5)
  - Death [Fatal]
  - Malignant neoplasm progression [Unknown]
  - Diarrhoea [Recovered/Resolved]
  - Thrombocytopenia [Recovered/Resolved]
  - Ascites [Recovering/Resolving]

NARRATIVE: CASE EVENT DATE: 20231001
